FAERS Safety Report 7121585-0 (Version None)
Quarter: 2010Q4

REPORT INFORMATION
  Report Type: 
  Country: None (occurrence: None)
  Receive Date: 20101124
  Receipt Date: 20101111
  Transmission Date: 20110411
  Serious: Yes (Hospitalization, Other)
  Sender: FDA-Public Use
  Company Number: US-ELI_LILLY_AND_COMPANY-US201008006784

PATIENT
  Sex: Female

DRUGS (1)
  1. FORTEO [Suspect]
     Dosage: 20 UG, UNKNOWN

REACTIONS (7)
  - ARTHRALGIA [None]
  - DIZZINESS [None]
  - FALL [None]
  - HEADACHE [None]
  - INJECTION SITE PAIN [None]
  - KNEE ARTHROPLASTY [None]
  - RIB FRACTURE [None]
